FAERS Safety Report 15077072 (Version 1)
Quarter: 2018Q2

REPORT INFORMATION
  Report Type: Spontaneous
  Country: US (occurrence: US)
  Receive Date: 20180627
  Receipt Date: 20180627
  Transmission Date: 20180711
  Serious: No
  Sender: FDA-Public Use
  Company Number: US-ASTRAZENECA-2018SE71611

PATIENT
  Sex: Male
  Weight: 111.1 kg

DRUGS (3)
  1. CRESTOR [Suspect]
     Active Substance: ROSUVASTATIN CALCIUM
     Indication: BLOOD CHOLESTEROL
     Dosage: GENERIC 20MG DAILY
     Route: 065
  2. CRESTOR [Suspect]
     Active Substance: ROSUVASTATIN CALCIUM
     Indication: BLOOD CHOLESTEROL
     Route: 048
  3. CRESTOR [Suspect]
     Active Substance: ROSUVASTATIN CALCIUM
     Indication: BLOOD CHOLESTEROL
     Dosage: GENERIC 10 MG DAILY
     Route: 065

REACTIONS (4)
  - Product use issue [Recovered/Resolved]
  - Cardiac murmur [Not Recovered/Not Resolved]
  - Back pain [Recovered/Resolved]
  - Blood cholesterol increased [Not Recovered/Not Resolved]
